FAERS Safety Report 17576049 (Version 2)
Quarter: 2020Q2

REPORT INFORMATION
  Report Type: Spontaneous
  Country: DK (occurrence: DK)
  Receive Date: 20200324
  Receipt Date: 20200401
  Transmission Date: 20200713
  Serious: Yes (Other)
  Sender: FDA-Public Use
  Company Number: DK-TEVA-2020-DK-1207943

PATIENT
  Age: 89 Year
  Sex: Female

DRUGS (19)
  1. OXYCODONE [Suspect]
     Active Substance: OXYCODONE
     Indication: PAIN
     Dosage: STRENGTH: 5 MG
     Route: 048
     Dates: start: 20200216, end: 20200217
  2. DOLOPROCT [Concomitant]
     Active Substance: FLUOCORTOLONE PIVALATE\LIDOCAINE HYDROCHLORIDE
     Indication: HAEMORRHOIDS
     Dosage: STRENGTH: UNKNOWN
     Route: 054
     Dates: start: 201810
  3. GLYCOPYRRONIUM [Concomitant]
     Active Substance: GLYCOPYRRONIUM
     Indication: CHRONIC OBSTRUCTIVE PULMONARY DISEASE
     Dosage: STRENGTH: 44 ?G
     Route: 055
     Dates: start: 201605
  4. BISACODYL. [Concomitant]
     Active Substance: BISACODYL
     Indication: CONSTIPATION
     Dosage: STRENGTH 5 MG DOSAGE: 1 TABLET AS NEEDED AT MOST ONCE DAILY
     Route: 048
     Dates: start: 201811
  5. PREDNISOLONE. [Concomitant]
     Active Substance: PREDNISOLONE
     Indication: ADRENOCORTICAL STEROID THERAPY
     Dosage: STRENGTH: 2.5 MG
     Route: 048
     Dates: start: 201807
  6. BISOPROLOL [Concomitant]
     Active Substance: BISOPROLOL
     Indication: CARDIAC DISORDER
     Dosage: STRENGTH: 2.5 MG
     Route: 048
     Dates: start: 201907
  7. CALCIUM OG D-VITAMIN [Concomitant]
     Indication: VITAMIN SUPPLEMENTATION
     Dosage: STRENGTH: 400 MG + 19 ?G
     Route: 048
     Dates: start: 201808
  8. SPIRONOLACTONE. [Concomitant]
     Active Substance: SPIRONOLACTONE
     Indication: OEDEMA
     Dosage: STRENGTH: 25 MG
     Route: 048
     Dates: start: 201909
  9. SALBUTAMOL [Concomitant]
     Active Substance: ALBUTEROL
     Indication: ASTHMA
     Dosage: STRENGTH: 200 ?G / DOSE, DOSAGE: 1 SUCTION AS NEEDED AT MOST 6 TIMES DAILY
     Route: 055
     Dates: start: 201504
  10. ALENDRONIC ACID [Concomitant]
     Active Substance: ALENDRONIC ACID
     Indication: OSTEOPOROSIS
     Dosage: STRENGTH: 70 MG
     Route: 048
     Dates: start: 201606
  11. FORMOTEROL OG BUDESONID [Concomitant]
     Indication: ASTHMA
     Dosage: STRENGTH: 4.5 + 160 ?G / DOSE
     Route: 055
     Dates: start: 201801
  12. INNOHEP [Concomitant]
     Active Substance: TINZAPARIN SODIUM
     Indication: PRODUCT USED FOR UNKNOWN INDICATION
     Dosage: STYRKE: UNKNOWN, DOSIS: UNKNOWN
  13. OXYNORM DISPERSA [Suspect]
     Active Substance: OXYCODONE HYDROCHLORIDE
     Indication: PAIN
     Dosage: STRENGTH: 5 MG, DOSAGE: MAXIMUM 4 TIMES DAILY IF NEEDED
     Route: 048
     Dates: start: 20200216, end: 20200217
  14. LOSARTAN. [Concomitant]
     Active Substance: LOSARTAN
     Indication: HYPERTENSION
     Dosage: STRENGTH: 12.5 MG
     Route: 048
     Dates: start: 201905
  15. MAGNESIA ^DAK^ [Concomitant]
     Indication: CONSTIPATION
     Dosage: STRENGTH: 500 MG, DOSAGE: 2 TABLETS AS NEEDED AT MOST ONCE DAILY
     Route: 048
     Dates: start: 201706
  16. BRENTACORT [Concomitant]
     Active Substance: HYDROCORTISONE\MICONAZOLE NITRATE
     Indication: ECZEMA
     Dosage: STRENGTH: 20 + 10 MG / G
     Route: 003
     Dates: start: 201910
  17. PANODIL [Concomitant]
     Active Substance: ACETAMINOPHEN
     Indication: PAIN
     Dosage: STRENGTH: 665 MG
     Route: 048
     Dates: start: 201606
  18. MOVICOL [Concomitant]
     Active Substance: POLYETHYLENE GLYCOL 3350\POTASSIUM CHLORIDE\SODIUM BICARBONATE\SODIUM CHLORIDE
     Indication: CONSTIPATION
     Dosage: STRENGTH: UNKOWN, DOSAGE: 1 LETTER AFTER EBONY AT MOST ONCE DAILY
     Route: 048
     Dates: start: 201807
  19. XYLOCAINE [Concomitant]
     Active Substance: LIDOCAINE HYDROCHLORIDE
     Indication: LOCAL ANAESTHESIA
     Dosage: STRENGTH: 5%, DOSAGE: 1 APPLICATION AS NEEDED
     Route: 003
     Dates: start: 201912

REACTIONS (1)
  - Delirium [Recovered/Resolved]

NARRATIVE: CASE EVENT DATE: 20200217
